FAERS Safety Report 18034453 (Version 1)
Quarter: 2020Q3

REPORT INFORMATION
  Report Type: Spontaneous
  Country: US (occurrence: US)
  Receive Date: 20200716
  Receipt Date: 20200716
  Transmission Date: 20201103
  Serious: No
  Sender: FDA-Public Use
  Company Number: US-TEVA-2020-US-1801687

PATIENT
  Sex: Female

DRUGS (4)
  1. PRO?GEST (PROGESTERONE) [Suspect]
     Active Substance: PROGESTERONE
     Route: 065
  2. ESTRADIOL. [Suspect]
     Active Substance: ESTRADIOL
     Indication: HOT FLUSH
  3. MEDROXYPROGESTERONE [Suspect]
     Active Substance: MEDROXYPROGESTERONE
     Indication: HORMONE THERAPY
     Route: 048
     Dates: start: 2020
  4. ESTRADIOL. [Suspect]
     Active Substance: ESTRADIOL
     Indication: MOOD SWINGS
     Dosage: 1.5 MG ORALLY 1X/DAY
     Route: 048

REACTIONS (4)
  - Feeling abnormal [Recovered/Resolved]
  - Depressed mood [Recovered/Resolved]
  - Vaginal haemorrhage [Recovered/Resolved]
  - Abdominal distension [Recovered/Resolved]

NARRATIVE: CASE EVENT DATE: 202002
